FAERS Safety Report 7773375-3 (Version None)
Quarter: 2011Q3

REPORT INFORMATION
  Report Type: 
  Country: None (occurrence: None)
  Receive Date: 20110922
  Receipt Date: 20110913
  Transmission Date: 20111222
  Serious: Yes (Hospitalization)
  Sender: FDA-Public Use
  Company Number: CH-ASTRAZENECA-2011SE55432

PATIENT
  Age: 81 Year
  Sex: Female

DRUGS (9)
  1. CALCIMAGON D3 [Concomitant]
     Dates: start: 20110817
  2. LEVOFLOXACIN [Concomitant]
     Dates: start: 20110817
  3. NEXIUM [Suspect]
     Route: 048
     Dates: end: 20110817
  4. ROCEPHIN [Suspect]
     Route: 042
     Dates: start: 20110816, end: 20110816
  5. MYCOSTATIN [Concomitant]
     Dates: start: 20110817
  6. FOLVITE [Concomitant]
  7. FLAGYL [Concomitant]
     Dates: start: 20110816
  8. PERENTEROL [Concomitant]
     Dates: start: 20110816
  9. CALCIPARINE [Concomitant]
     Dates: start: 20110817

REACTIONS (2)
  - RASH [None]
  - ENTEROCOLITIS [None]
